FAERS Safety Report 17600166 (Version 4)
Quarter: 2021Q1

REPORT INFORMATION
  Report Type: Spontaneous
  Country: US (occurrence: US)
  Receive Date: 20200330
  Receipt Date: 20210127
  Transmission Date: 20210419
  Serious: Yes (Other)
  Sender: FDA-Public Use
  Company Number: US-PFIZER INC-2016570932

PATIENT
  Age: 74 Year
  Sex: Male
  Weight: 90.72 kg

DRUGS (15)
  1. LYRICA [Suspect]
     Active Substance: PREGABALIN
     Indication: PAIN
     Dosage: 150 MG, 3X/DAY
     Dates: start: 2015
  2. LYRICA [Suspect]
     Active Substance: PREGABALIN
     Dosage: 150 MG, 3X/DAY (TAKE ONE CAPSULE BY MOUTH THREE TIMES DAILY)
     Route: 048
     Dates: start: 20201028
  3. ASPIRIN. [Concomitant]
     Active Substance: ASPIRIN
     Dosage: 81 MG, 2X/DAY (AKE 162 MG BY MOUTH DAILY)
     Route: 048
  4. LANTUS [Concomitant]
     Active Substance: INSULIN GLARGINE
     Dosage: 40 IU, DAILY (EVERY DAY INCREASE BY 3 UNITS EVERY 3 DAYS FOR FASTING SUGARS OVER 120)
     Route: 058
     Dates: start: 20160928
  5. GLUCOPHAGE [Concomitant]
     Active Substance: METFORMIN HYDROCHLORIDE
     Dosage: 500 MG, 2X/DAY (TAKE ONE HALF TABLET BY MOUTH TWICE DAILY TAKE WITH BREAKFAST AND DINNER)
     Route: 048
     Dates: start: 20160928
  6. NORVASC [Concomitant]
     Active Substance: AMLODIPINE BESYLATE
     Dosage: 10 MG, DAILY (2 DAILY)
     Dates: start: 20110825
  7. LYRICA [Suspect]
     Active Substance: PREGABALIN
     Dosage: 150 MG, 3X/DAY (ONE CAPSULE THREE TIME DAILY)
     Route: 048
     Dates: start: 20201005
  8. ELAVIL [Concomitant]
     Active Substance: AMITRIPTYLINE HYDROCHLORIDE
     Dosage: 50 MG, 1X/DAY (TAKE 1 TABLET BY MOUTH ONCE DAILY IN THE EVENING)
     Route: 048
     Dates: start: 20160830
  9. LYRICA [Suspect]
     Active Substance: PREGABALIN
     Indication: POLYNEUROPATHY
     Dosage: 150 MG, 3X/DAY (ONE CAPSULE THREE TIMES A DAILY)
     Route: 048
     Dates: start: 20161130
  10. PRINZIDE [Concomitant]
     Active Substance: HYDROCHLOROTHIAZIDE\LISINOPRIL
     Dosage: UNK (20?12.5 MG)
     Dates: start: 20151130
  11. ZESTORETIC [Concomitant]
     Active Substance: HYDROCHLOROTHIAZIDE\LISINOPRIL
     Dosage: UNK (20?12.5 MG)
     Dates: start: 20151130
  12. LYRICA [Suspect]
     Active Substance: PREGABALIN
     Indication: NEUROPATHY PERIPHERAL
     Dosage: 150 MG, 3X/DAY (THREE TIMES A DAILY)
     Route: 048
     Dates: start: 20161031
  13. LYRICA [Suspect]
     Active Substance: PREGABALIN
     Dosage: 300 MG, 2X/DAY
     Route: 048
  14. PRAVACHOL [Concomitant]
     Active Substance: PRAVASTATIN SODIUM
     Dosage: 20 MG, DAILY (TAKE 20 MG BY MOUTH NIGHTLY)
     Route: 048
     Dates: start: 20141019
  15. VITAMIN B12 [Concomitant]
     Active Substance: CYANOCOBALAMIN
     Dosage: 1000 UG, 2X/DAY (TAKE 2TABLETS BY MOUTH DAILY)
     Route: 048
     Dates: start: 20151204

REACTIONS (5)
  - Hypoacusis [Unknown]
  - Anxiety [Unknown]
  - Panic reaction [Unknown]
  - Mental impairment [Unknown]
  - Memory impairment [Unknown]
